FAERS Safety Report 13442717 (Version 1)
Quarter: 2017Q2

REPORT INFORMATION
  Report Type: Spontaneous
  Country: US (occurrence: US)
  Receive Date: 20170414
  Receipt Date: 20170414
  Transmission Date: 20170830
  Serious: Yes (Disabling)
  Sender: FDA-Public Use
  Company Number: None

PATIENT
  Age: 32 Year
  Sex: Male
  Weight: 55 kg

DRUGS (4)
  1. COARTEM [Suspect]
     Active Substance: ARTEMETHER\LUMEFANTRINE
     Indication: MALARIA
     Dosage: DOSING - 20/120 MG TABLETS PO ON 0, 8, 24, 36, 48, A
     Route: 048
     Dates: start: 20161105, end: 20161108
  2. PRIMAQUINE [Concomitant]
     Active Substance: PRIMAQUINE PHOSPHATE
  3. HYDROXYUREA. [Concomitant]
     Active Substance: HYDROXYUREA
  4. HYDROMORPHONE [Concomitant]
     Active Substance: HYDROMORPHONE

REACTIONS (6)
  - Haemoglobin decreased [None]
  - Chills [None]
  - Pain [None]
  - Arthralgia [None]
  - Blood lactate dehydrogenase increased [None]
  - Pyrexia [None]

NARRATIVE: CASE EVENT DATE: 20161121
